FAERS Safety Report 9313892 (Version 1)
Quarter: 2013Q2

REPORT INFORMATION
  Report Type: Spontaneous
  Country: US (occurrence: US)
  Receive Date: 20130529
  Receipt Date: 20130529
  Transmission Date: 20140414
  Serious: Yes (Other)
  Sender: FDA-Public Use
  Company Number: US-GLENMARK GENERICS INC.-2013GMK005761

PATIENT
  Age: 18 Year
  Sex: Female

DRUGS (1)
  1. NORGESTIMATE + EE TABLETS (7-7-7) [Suspect]
     Indication: CONTRACEPTION
     Dosage: UNK
     Route: 048
     Dates: start: 201202

REACTIONS (2)
  - Unintended pregnancy [Recovered/Resolved]
  - Product blister packaging issue [None]
